FAERS Safety Report 6532748-7 (Version None)
Quarter: 2010Q1

REPORT INFORMATION
  Report Type: 
  Country: None (occurrence: None)
  Receive Date: 20100111
  Receipt Date: 20091230
  Transmission Date: 20100710
  Serious: Yes (Other)
  Sender: FDA-Public Use
  Company Number: PHEH2009US18776

PATIENT
  Sex: Female

DRUGS (6)
  1. RECLAST [Suspect]
     Dosage: UNK,UNK
     Dates: start: 20091223
  2. WELCHOL [Concomitant]
  3. NIASPAN [Concomitant]
  4. SYNTHROID [Concomitant]
  5. PROPRANOLOL [Concomitant]
  6. LYRICA [Concomitant]

REACTIONS (6)
  - ARTHRALGIA [None]
  - BACK PAIN [None]
  - CHEST PAIN [None]
  - MUSCULOSKELETAL PAIN [None]
  - MYOCARDIAL INFARCTION [None]
  - PAIN IN EXTREMITY [None]
